FAERS Safety Report 24097585 (Version 1)
Quarter: 2024Q3

REPORT INFORMATION
  Report Type: Spontaneous
  Country: ES (occurrence: ES)
  Receive Date: 20240716
  Receipt Date: 20240716
  Transmission Date: 20241017
  Serious: Yes (Other)
  Sender: BRISTOL MYERS SQUIBB
  Company Number: ES-INCYTE CORPORATION-2024IN006422

PATIENT
  Sex: Female

DRUGS (3)
  1. LENALIDOMIDE [Suspect]
     Active Substance: LENALIDOMIDE
     Indication: Diffuse large B-cell lymphoma
     Dosage: UNK
  2. TAFASITAMAB [Suspect]
     Active Substance: TAFASITAMAB
     Indication: Diffuse large B-cell lymphoma
     Dosage: 12 MILLIGRAM/KILOGRAM (780MG TOTAL), DAYS +1,+8,+15,+22 (EXTRA DOSE IN 1ST CYCLE AT DAY +4) FOR CYCL
     Dates: start: 20240206
  3. TAFASITAMAB [Suspect]
     Active Substance: TAFASITAMAB
     Dosage: 12 MILLIGRAM/KILOGRAM (780MG TOTAL), DAYS +1 AND +15 (CYCLES 4 AND 5)

REACTIONS (4)
  - Immunosuppression [Unknown]
  - Neutropenia [Unknown]
  - Respiratory tract infection [Not Recovered/Not Resolved]
  - Off label use [Unknown]
